FAERS Safety Report 15586523 (Version 2)
Quarter: 2019Q1

REPORT INFORMATION
  Report Type: Spontaneous
  Country: US (occurrence: US)
  Receive Date: 20181105
  Receipt Date: 20190104
  Transmission Date: 20190417
  Serious: No
  Sender: FDA-Public Use
  Company Number: US-ASTRAZENECA-2018SF32221

PATIENT
  Sex: Female

DRUGS (2)
  1. BYDUREON BCISE [Suspect]
     Active Substance: EXENATIDE
     Route: 058
  2. METFORMIN [Concomitant]
     Active Substance: METFORMIN HYDROCHLORIDE

REACTIONS (11)
  - Abdominal discomfort [Unknown]
  - Injection site erythema [Unknown]
  - Dysuria [Unknown]
  - Retching [Unknown]
  - Neck mass [Unknown]
  - Weight decreased [Unknown]
  - Malaise [Unknown]
  - Dysgeusia [Unknown]
  - Gastritis [Unknown]
  - Injection site pruritus [Unknown]
  - Glycosylated haemoglobin decreased [Unknown]
